FAERS Safety Report 6495476-2 (Version None)
Quarter: 2009Q4

REPORT INFORMATION
  Report Type: 
  Country: None (occurrence: None)
  Receive Date: 20091214
  Receipt Date: 20090629
  Transmission Date: 20100525
  Serious: No
  Sender: FDA-Public Use
  Company Number: US-BRISTOL-MYERS SQUIBB COMPANY-14682694

PATIENT
  Sex: Female

DRUGS (3)
  1. ABILIFY [Suspect]
     Dosage: DECREASED TO 7.5MG ABOUT 1WEEK AGO
  2. LUPRON [Suspect]
  3. ANTIDEPRESSANT NOS [Concomitant]

REACTIONS (1)
  - DYSPHAGIA [None]
